FAERS Safety Report 8170238-9 (Version None)
Quarter: 2012Q1

REPORT INFORMATION
  Report Type: 
  Country: None (occurrence: None)
  Receive Date: 20120228
  Receipt Date: 20120221
  Transmission Date: 20120608
  Serious: Yes (Death, Other)
  Sender: FDA-Public Use
  Company Number: PHHY2012CZ015652

PATIENT
  Age: 47 Year
  Sex: Male

DRUGS (2)
  1. CYCLOSPORINE [Suspect]
     Indication: WEGENER'S GRANULOMATOSIS
     Dosage: 5 MG/KG, PER DAY
     Dates: end: 20011001
  2. PREDNISONE TAB [Concomitant]
     Dosage: 20 MG, EVERY OTHER DAY
     Dates: end: 20011001

REACTIONS (15)
  - SUPERIOR VENA CAVA SYNDROME [None]
  - HAEMOPTYSIS [None]
  - PURPURA [None]
  - WEGENER'S GRANULOMATOSIS [None]
  - RASH [None]
  - VASCULITIS [None]
  - SPUTUM PURULENT [None]
  - DRUG RESISTANCE [None]
  - LOCAL SWELLING [None]
  - OEDEMA PERIPHERAL [None]
  - PETECHIAE [None]
  - RESPIRATORY FAILURE [None]
  - COUGH [None]
  - SWELLING FACE [None]
  - DYSPNOEA [None]
